FAERS Safety Report 6068123-1 (Version None)
Quarter: 2009Q1

REPORT INFORMATION
  Report Type: 
  Country: None (occurrence: None)
  Receive Date: 20090206
  Receipt Date: 20090205
  Transmission Date: 20090719
  Serious: Yes (Hospitalization)
  Sender: FDA-Public Use
  Company Number: JP-AMGEN-US299817

PATIENT
  Sex: Female

DRUGS (19)
  1. ENBREL [Suspect]
     Indication: RHEUMATOID ARTHRITIS
     Route: 058
     Dates: start: 20070407, end: 20080620
  2. WARFARIN POTASSIUM [Suspect]
     Indication: VENOUS THROMBOSIS
     Route: 048
     Dates: start: 20070407
  3. BUCILLAMINE [Concomitant]
     Indication: RHEUMATOID ARTHRITIS
     Route: 048
     Dates: start: 20070402
  4. BUCILLAMINE [Concomitant]
     Dosage: NOT SPECIFIED
     Route: 048
     Dates: start: 20061201
  5. PREDNISOLONE [Concomitant]
     Indication: RHEUMATOID ARTHRITIS
     Route: 048
     Dates: start: 20070402
  6. TAKEPRON [Concomitant]
     Indication: REFLUX OESOPHAGITIS
     Route: 048
     Dates: start: 20070407
  7. FOLIAMIN [Concomitant]
     Route: 048
     Dates: start: 20070407
  8. ALFAROL [Concomitant]
     Indication: OSTEOPOROSIS
     Route: 048
     Dates: start: 20070407
  9. OMEPRAL [Concomitant]
     Route: 048
     Dates: start: 20080701
  10. LACTOBACILLUS BIFIDUS, LYOPHILIZED [Concomitant]
     Route: 048
     Dates: start: 20080701
  11. DIASTASE [Concomitant]
     Route: 048
     Dates: start: 20080701
  12. ALBUMIN TANNATE [Concomitant]
     Route: 048
     Dates: start: 20080701
  13. ADSORBIN [Concomitant]
     Route: 048
     Dates: start: 20080701
  14. RIMATIL [Concomitant]
     Route: 048
     Dates: start: 20070407
  15. FOSAMAX [Concomitant]
     Route: 048
     Dates: start: 20070407
  16. TORSEMIDE [Concomitant]
     Route: 048
     Dates: start: 20080701
  17. RHEUMATREX [Concomitant]
     Indication: RHEUMATOID ARTHRITIS
     Dosage: NOT SPECIFIED
     Route: 048
     Dates: start: 20061201
  18. RHEUMATREX [Concomitant]
     Dosage: NOT SPECIFIED
     Route: 048
     Dates: start: 20070402, end: 20070512
  19. RHEUMATREX [Concomitant]
     Dosage: NOT SPECIFIED
     Route: 048
     Dates: start: 20070512

REACTIONS (3)
  - BLOOD PRESSURE DECREASED [None]
  - ENTEROCOLITIS [None]
  - GASTROINTESTINAL HAEMORRHAGE [None]
